FAERS Safety Report 6943029-1 (Version None)
Quarter: 2010Q3

REPORT INFORMATION
  Report Type: 
  Country: None (occurrence: None)
  Receive Date: 20100826
  Receipt Date: 20100818
  Transmission Date: 20110219
  Serious: Yes (Death, Hospitalization)
  Sender: FDA-Public Use
  Company Number: US-BAXTER-2010BH021308

PATIENT
  Age: 77 Year
  Sex: Female

DRUGS (1)
  1. DIANEAL [Suspect]
     Indication: PERITONEAL DIALYSIS
     Route: 033
     Dates: end: 20100810

REACTIONS (5)
  - ASPIRATION [None]
  - CEREBROVASCULAR ACCIDENT [None]
  - HYPOTENSION [None]
  - INFECTION [None]
  - SKIN ULCER [None]
